FAERS Safety Report 7620987-3 (Version None)
Quarter: 2011Q3

REPORT INFORMATION
  Report Type: 
  Country: None (occurrence: None)
  Receive Date: 20110719
  Receipt Date: 20100607
  Transmission Date: 20111222
  Serious: No
  Sender: FDA-Public Use
  Company Number: US-KINGPHARMUSA00001-K201000698

PATIENT
  Age: 82 Year
  Sex: Female

DRUGS (3)
  1. LEVOXYL [Suspect]
     Indication: THYROIDECTOMY
     Dosage: 100 MCG, QAM
     Route: 048
     Dates: start: 20100301
  2. OSCAL [Concomitant]
     Dosage: 500 MG, BID
     Route: 048
  3. VITAMIN D [Concomitant]
     Dosage: 600 MG, BID
     Route: 048

REACTIONS (3)
  - FEELING ABNORMAL [None]
  - FATIGUE [None]
  - ASTHENIA [None]
